FAERS Safety Report 8769572 (Version 3)
Quarter: 2012Q4

REPORT INFORMATION
  Report Type: 
  Country: US (occurrence: US)
  Receive Date: 20120905
  Receipt Date: 20120912
  Transmission Date: 20130627
  Serious: Yes (Hospitalization)
  Sender: FDA-Public Use
  Company Number: PHEH2011US01795

PATIENT
  Age: 80 Year
  Sex: Female

DRUGS (3)
  1. GLEEVEC [Suspect]
     Indication: CHRONIC MYELOID LEUKAEMIA
     Dosage: 400 mg, daily
     Dates: start: 20110718
  2. GLEEVEC [Suspect]
     Dosage: 200 mg, daily
     Dates: start: 20120515
  3. GLEEVEC [Suspect]
     Dosage: 3 DF, (QAM)
     Route: 048

REACTIONS (3)
  - Haemorrhoids [Unknown]
  - Dysuria [Unknown]
  - Pruritus [Not Recovered/Not Resolved]
